FAERS Safety Report 7633018-6 (Version None)
Quarter: 2011Q3

REPORT INFORMATION
  Report Type: 
  Country: None (occurrence: None)
  Receive Date: 20110725
  Receipt Date: 20110721
  Transmission Date: 20111222
  Serious: Yes (Other)
  Sender: FDA-Public Use
  Company Number: US-PFIZER INC-2011166503

PATIENT
  Age: 54 Year
  Sex: Female

DRUGS (3)
  1. CHANTIX [Suspect]
     Indication: SMOKING CESSATION THERAPY
     Dosage: UNK
  2. MINERALS NOS [Concomitant]
     Dosage: UNK
  3. ASCORBIC ACID [Concomitant]
     Dosage: UNK

REACTIONS (10)
  - HEADACHE [None]
  - COGNITIVE DISORDER [None]
  - FEELING ABNORMAL [None]
  - ABNORMAL DREAMS [None]
  - AGITATION [None]
  - IRRITABILITY [None]
  - ANGER [None]
  - PERSONALITY CHANGE [None]
  - AUTOPHOBIA [None]
  - NIGHTMARE [None]
